FAERS Safety Report 21816305 (Version 1)
Quarter: 2023Q1

REPORT INFORMATION
  Report Type: Spontaneous
  Country: DE (occurrence: DE)
  Receive Date: 20230104
  Receipt Date: 20230104
  Transmission Date: 20230417
  Serious: Yes (Hospitalization)
  Sender: FDA-Public Use
  Company Number: DE-PEI-202200156819

PATIENT
  Age: 6 Month
  Sex: Female

DRUGS (1)
  1. SYNAGIS [Suspect]
     Active Substance: PALIVIZUMAB
     Indication: Product used for unknown indication
     Dates: start: 20221013, end: 20221208

REACTIONS (1)
  - Respiratory syncytial virus test positive [Recovered/Resolved]

NARRATIVE: CASE EVENT DATE: 20221214
